FAERS Safety Report 14587752 (Version 2)
Quarter: 2018Q2

REPORT INFORMATION
  Report Type: Spontaneous
  Country: US (occurrence: US)
  Receive Date: 20180301
  Receipt Date: 20180529
  Transmission Date: 20180711
  Serious: Yes (Other)
  Sender: FDA-Public Use
  Company Number: US-BAYER-2018-036934

PATIENT
  Age: 26 Year
  Sex: Female
  Weight: 71 kg

DRUGS (1)
  1. MIRENA [Suspect]
     Active Substance: LEVONORGESTREL
     Dosage: 20 MCG/24HR, CONT
     Route: 015
     Dates: start: 20161123, end: 20170504

REACTIONS (11)
  - Loss of libido [None]
  - Emotional distress [None]
  - Angina pectoris [None]
  - Depression [None]
  - Headache [None]
  - Weight increased [None]
  - Back pain [None]
  - Uterine perforation [Recovered/Resolved with Sequelae]
  - Pelvic pain [Recovered/Resolved with Sequelae]
  - Vision blurred [None]
  - Dizziness [None]

NARRATIVE: CASE EVENT DATE: 20170421
